FAERS Safety Report 8610836-9 (Version None)
Quarter: 2012Q3

REPORT INFORMATION
  Report Type: 
  Country: None (occurrence: None)
  Receive Date: 20120808
  Receipt Date: 20120725
  Transmission Date: 20120928
  Serious: Yes (Death)
  Sender: FDA-Public Use
  Company Number: 2012MA009125

PATIENT
  Age: 52 Year
  Sex: Female

DRUGS (10)
  1. AMPHETAMINES [Suspect]
     Indication: COMPLETED SUICIDE
     Dosage: PO
     Route: 048
  2. CYCLOBENZAPRINE [Suspect]
     Indication: COMPLETED SUICIDE
     Dosage: 10 MG;PO
     Route: 048
  3. IBUPROFEN [Suspect]
     Indication: COMPLETED SUICIDE
     Dosage: 600 MG;PO
     Route: 048
  4. METOCLOPRAMIDE [Suspect]
     Indication: COMPLETED SUICIDE
     Dosage: 10 MG;PO
     Route: 048
  5. GABAPENTIN [Suspect]
     Dosage: 300 MG;PO
     Route: 048
  6. GEMFIBROZIL [Suspect]
     Indication: COMPLETED SUICIDE
     Dosage: 600 MG;PO
     Route: 048
  7. KADIAN [Suspect]
     Indication: COMPLETED SUICIDE
     Dosage: PO
     Route: 048
  8. ETHANOL [Suspect]
     Indication: COMPLETED SUICIDE
     Dosage: PO
     Route: 048
  9. PROPRANOLOL HCL [Suspect]
     Indication: COMPLETED SUICIDE
     Dosage: 20 MG;PO
     Route: 048
  10. AMITRIPTYLINE HYDROCHLORIDE [Suspect]
     Indication: COMPLETED SUICIDE
     Dosage: 50 MG;PO
     Route: 048

REACTIONS (2)
  - COMPLETED SUICIDE [None]
  - MULTIPLE DRUG OVERDOSE INTENTIONAL [None]
